FAERS Safety Report 8361939-8 (Version None)
Quarter: 2012Q2

REPORT INFORMATION
  Report Type: 
  Country: None (occurrence: None)
  Receive Date: 20120515
  Receipt Date: 20120502
  Transmission Date: 20120825
  Serious: Yes (Other)
  Sender: FDA-Public Use
  Company Number: NL-TEVA-336207ISR

PATIENT
  Age: 49 Year
  Sex: Male

DRUGS (3)
  1. ACTIQ [Suspect]
     Indication: HERNIA
     Dosage: 400 MCG 1-4 TIMES DAILY
     Route: 002
     Dates: start: 20100201, end: 20100101
  2. ACTIQ [Suspect]
     Dosage: 800 MICROCURIE;
     Route: 002
     Dates: start: 20091001, end: 20100201
  3. PRILOSEC [Concomitant]

REACTIONS (3)
  - OFF LABEL USE [None]
  - DRUG DEPENDENCE [None]
  - WITHDRAWAL SYNDROME [None]
